FAERS Safety Report 23290017 (Version 1)
Quarter: 2023Q4

REPORT INFORMATION
  Report Type: Spontaneous
  Country: CN (occurrence: CN)
  Receive Date: 20231212
  Receipt Date: 20231212
  Transmission Date: 20240110
  Serious: Yes (Hospitalization, Other)
  Sender: FDA-Public Use
  Company Number: None

PATIENT
  Age: 39 Year
  Sex: Female

DRUGS (6)
  1. IFOSFAMIDE [Suspect]
     Active Substance: IFOSFAMIDE
     Indication: Lymphoma
     Dosage: 2 G, ONE TIME IN ONE DAY, D1-3
     Route: 041
     Dates: start: 20230923, end: 20230925
  2. IFOSFAMIDE [Suspect]
     Active Substance: IFOSFAMIDE
     Dosage: 1 G, ONE TIME IN ONE DAY, D4
     Route: 041
     Dates: start: 20230926, end: 20230926
  3. MESNA [Suspect]
     Active Substance: MESNA
     Indication: Lymphoma
     Dosage: 0.4 G, TID, D1-4
     Route: 042
     Dates: start: 20230923, end: 20230926
  4. ETOPOSIDE [Suspect]
     Active Substance: ETOPOSIDE
     Indication: Lymphoma
     Dosage: 100 MG, ONE TIME IN ONE DAY, D1-4
     Route: 041
     Dates: start: 20230923, end: 20230926
  5. SINTILIMAB [Suspect]
     Active Substance: SINTILIMAB
     Indication: Lymphoma
     Dosage: 200 MG, ONE TIME IN ONE DAY, D5
     Route: 041
     Dates: start: 20230927, end: 20230927
  6. CARBOPLATIN [Suspect]
     Active Substance: CARBOPLATIN
     Indication: Lymphoma
     Dosage: 400 MG, ONE TIME IN ONE DAY, D2
     Route: 041
     Dates: start: 20230924, end: 20230924

REACTIONS (1)
  - Myelosuppression [Unknown]

NARRATIVE: CASE EVENT DATE: 20230927
